FAERS Safety Report 4290272-9 (Version None)
Quarter: 2004Q1

REPORT INFORMATION
  Report Type: 
  Country: None (occurrence: None)
  Receive Date: 20040209
  Receipt Date: 20040122
  Transmission Date: 20041129
  Serious: Yes (Hospitalization)
  Sender: FDA-Public Use
  Company Number: MEDI-0001347

PATIENT

DRUGS (1)
  1. SYNAGIS [Suspect]
     Indication: ANTIVIRAL PROPHYLAXIS
     Dosage: UNKNOWN, 1 IN 30 D, INTRAMUSCULAR
     Route: 030

REACTIONS (2)
  - FEEDING PROBLEM IN NEWBORN [None]
  - HAEMATOCHEZIA [None]
